FAERS Safety Report 16673169 (Version 2)
Quarter: 2019Q3

REPORT INFORMATION
  Report Type: Spontaneous
  Country: US (occurrence: US)
  Receive Date: 20190806
  Receipt Date: 20190822
  Transmission Date: 20191004
  Serious: No
  Sender: FDA-Public Use
  Company Number: US-PFIZER INC-2019225970

PATIENT
  Age: 57 Year
  Sex: Female
  Weight: 113 kg

DRUGS (1)
  1. LYRICA [Suspect]
     Active Substance: PREGABALIN
     Indication: NEUROPATHY PERIPHERAL
     Dosage: 100 MG, 3X/DAY
     Route: 048
     Dates: start: 201801, end: 201806

REACTIONS (3)
  - Muscle spasms [Not Recovered/Not Resolved]
  - Pain [Unknown]
  - Burning sensation [Unknown]
